FAERS Safety Report 6381710-6 (Version None)
Quarter: 2009Q3

REPORT INFORMATION
  Report Type: 
  Country: None (occurrence: None)
  Receive Date: 20090930
  Receipt Date: 20090918
  Transmission Date: 20100115
  Serious: Yes (Other)
  Sender: FDA-Public Use
  Company Number: PHHY2009CA40518

PATIENT
  Sex: Female

DRUGS (2)
  1. CLOZARIL [Suspect]
     Dosage: 187.5 MG/DAY
     Dates: start: 20031208
  2. ARIPIPRAZOLE [Concomitant]
     Dosage: 30 MG/DAY

REACTIONS (4)
  - GRANULOCYTE COUNT DECREASED [None]
  - LEUKAEMIA [None]
  - LYMPHOCYTE COUNT DECREASED [None]
  - NEUTROPHIL COUNT DECREASED [None]
